FAERS Safety Report 17059954 (Version 2)
Quarter: 2019Q4

REPORT INFORMATION
  Report Type: Spontaneous
  Country: US (occurrence: US)
  Receive Date: 20191121
  Receipt Date: 20191213
  Transmission Date: 20200122
  Serious: Yes (Other)
  Sender: FDA-Public Use
  Company Number: US-NOVOPROD-675060

PATIENT
  Age: 82 Year
  Sex: Male

DRUGS (5)
  1. LEVEMIR [Suspect]
     Active Substance: INSULIN DETEMIR
     Dosage: 30 UNITS
     Route: 058
  2. NOVOLOG [Suspect]
     Active Substance: INSULIN ASPART
     Dosage: 50 UNITS (OVERDOSE) AS NEEDED
     Route: 058
     Dates: start: 2009
  3. LEVEMIR [Suspect]
     Active Substance: INSULIN DETEMIR
     Indication: DIABETES MELLITUS
     Dosage: 30 UNITS
     Route: 058
     Dates: start: 2009
  4. LEVEMIR [Suspect]
     Active Substance: INSULIN DETEMIR
     Dosage: 50 UNITS (OVERDOSE)
     Route: 058
  5. NOVOLOG [Suspect]
     Active Substance: INSULIN ASPART
     Indication: DIABETES MELLITUS
     Dosage: 50 ML, PRN
     Route: 058
     Dates: start: 2009

REACTIONS (3)
  - Blood glucose increased [Not Recovered/Not Resolved]
  - Hypoglycaemic coma [Recovered/Resolved]
  - Accidental overdose [Unknown]

NARRATIVE: CASE EVENT DATE: 20190718
